FAERS Safety Report 7184049-4 (Version None)
Quarter: 2010Q4

REPORT INFORMATION
  Report Type: 
  Country: None (occurrence: None)
  Receive Date: 20101222
  Receipt Date: 20101209
  Transmission Date: 20110411
  Serious: Yes (Other)
  Sender: FDA-Public Use
  Company Number: PHHY2010CA83976

PATIENT
  Sex: Female

DRUGS (1)
  1. ZOLEDRONIC ACID (RECLAST) [Suspect]
     Indication: OSTEOPOROSIS
     Dosage: UNK
     Dates: start: 20101201

REACTIONS (5)
  - FATIGUE [None]
  - HEADACHE [None]
  - LIP SWELLING [None]
  - RASH [None]
  - SENSATION OF PRESSURE [None]
